FAERS Safety Report 5656011-1 (Version None)
Quarter: 2008Q1

REPORT INFORMATION
  Report Type: 
  Country: None (occurrence: None)
  Receive Date: 20080307
  Receipt Date: 20080226
  Transmission Date: 20080703
  Serious: Yes (Hospitalization, Other)
  Sender: FDA-Public Use
  Company Number: US-PFIZER INC-2008018630

PATIENT
  Sex: Female
  Weight: 79 kg

DRUGS (3)
  1. DILANTIN [Suspect]
     Indication: EPILEPSY
  2. PREVACID [Suspect]
  3. NEXIUM [Suspect]

REACTIONS (8)
  - ANTICONVULSANT DRUG LEVEL INCREASED [None]
  - DYSPHAGIA [None]
  - DYSURIA [None]
  - EYE PAIN [None]
  - FEELING DRUNK [None]
  - GASTROINTESTINAL DISORDER [None]
  - PITUITARY TUMOUR BENIGN [None]
  - THYROID DISORDER [None]
